FAERS Safety Report 16920056 (Version 1)
Quarter: 2019Q4

REPORT INFORMATION
  Report Type: Spontaneous
  Country: US (occurrence: US)
  Receive Date: 20191015
  Receipt Date: 20191015
  Transmission Date: 20200122
  Serious: Yes (Other)
  Sender: FDA-Public Use
  Company Number: US-MELINTA THERAPEUTICS, INC-US-MLNT-19-00172

PATIENT
  Sex: Female

DRUGS (2)
  1. ORBACTIV [Suspect]
     Active Substance: ORITAVANCIN
     Indication: ABSCESS
     Dosage: NOT PROVIDED.
     Route: 041
     Dates: start: 20190917, end: 20190917
  2. ORBACTIV [Suspect]
     Active Substance: ORITAVANCIN
     Dosage: NOT PROVIDED.
     Route: 041
     Dates: start: 20191001, end: 20191001

REACTIONS (6)
  - Dyspnoea [Unknown]
  - Blood pressure systolic increased [Unknown]
  - Off label use [Unknown]
  - Groin pain [Unknown]
  - Chest pain [Unknown]
  - Back pain [Unknown]

NARRATIVE: CASE EVENT DATE: 20191001
